FAERS Safety Report 6531003-9 (Version None)
Quarter: 2010Q1

REPORT INFORMATION
  Report Type: 
  Country: None (occurrence: None)
  Receive Date: 20100108
  Receipt Date: 20090825
  Transmission Date: 20100710
  Serious: No
  Sender: FDA-Public Use
  Company Number: A0804079A

PATIENT
  Age: 78 Year
  Sex: Female

DRUGS (6)
  1. LOVAZA [Suspect]
     Dosage: 2CAP TWICE PER DAY
     Route: 048
     Dates: start: 20090601
  2. IBANDRONATE SODIUM [Concomitant]
  3. VITAMIN D [Concomitant]
  4. PREMARIN [Concomitant]
  5. TRIAMTERENE [Concomitant]
  6. ASPIRIN [Concomitant]

REACTIONS (2)
  - EYE PAIN [None]
  - MYALGIA [None]
